FAERS Safety Report 9153058 (Version 2)
Quarter: 2013Q2

REPORT INFORMATION
  Report Type: Spontaneous
  Country: US (occurrence: US)
  Receive Date: 20130310
  Receipt Date: 20130521
  Transmission Date: 20140414
  Serious: No
  Sender: FDA-Public Use
  Company Number: US-009507513-1303USA000677

PATIENT
  Sex: Female

DRUGS (2)
  1. NEXPLANON [Suspect]
     Indication: CONTRACEPTION
     Dosage: ONE ROD
     Route: 059
     Dates: start: 201210, end: 201301
  2. NUVARING [Suspect]
     Dosage: UNK
     Route: 067
     Dates: start: 2013

REACTIONS (1)
  - Menorrhagia [Not Recovered/Not Resolved]
